FAERS Safety Report 17571516 (Version 2)
Quarter: 2020Q2

REPORT INFORMATION
  Report Type: Spontaneous
  Country: US (occurrence: US)
  Receive Date: 20200323
  Receipt Date: 20200518
  Transmission Date: 20200713
  Serious: No
  Sender: FDA-Public Use
  Company Number: US-LEO PHARMA-328803

PATIENT
  Sex: Female

DRUGS (1)
  1. DAIVONEX [Suspect]
     Active Substance: CALCIPOTRIENE
     Indication: PSORIASIS
     Dosage: ONCE A DAY USUALLY, SOMETIMES TWICE A DAY
     Route: 061

REACTIONS (4)
  - Inappropriate schedule of product administration [Unknown]
  - Application site inflammation [Recovered/Resolved]
  - Drug resistance [Recovered/Resolved]
  - Application site erythema [Recovered/Resolved]
